FAERS Safety Report 5961884-9 (Version None)
Quarter: 2008Q4

REPORT INFORMATION
  Report Type: 
  Country: None (occurrence: None)
  Receive Date: 20081121
  Receipt Date: 20080911
  Transmission Date: 20090506
  Serious: Yes (Other)
  Sender: FDA-Public Use
  Company Number: US-BRISTOL-MYERS SQUIBB COMPANY-14316392

PATIENT
  Age: 46 Year
  Sex: Female

DRUGS (3)
  1. AVALIDE [Suspect]
     Indication: HYPERTENSION
     Dosage: 1 DOSAGEFORM = 300MG/12.5MG. STARTED WITH AVALIDE 150/12.5 MG, THEN INCREASED TO 300/12.5 MG
     Route: 048
     Dates: start: 20080504
  2. LISINOPRIL [Suspect]
  3. HYDROCHLOROTHIAZIDE [Suspect]

REACTIONS (2)
  - ANAPHYLACTIC REACTION [None]
  - URTICARIA [None]
